FAERS Safety Report 8829328 (Version 2)
Quarter: 2014Q3

REPORT INFORMATION
  Report Type: Report from Study
  Country: US (occurrence: US)
  Receive Date: 20121008
  Receipt Date: 20140912
  Transmission Date: 20150326
  Serious: Yes (Other)
  Sender: FDA-Public Use
  Company Number: US-ROCHE-1137778

PATIENT
  Sex: Female
  Weight: 82.74 kg

DRUGS (4)
  1. RITUXAN [Suspect]
     Active Substance: RITUXIMAB
     Indication: LYMPHOMA
     Route: 065
  2. CYTOXAN [Concomitant]
     Active Substance: CYCLOPHOSPHAMIDE
  3. ERYTHROMYCINE [Concomitant]
     Active Substance: ERYTHROMYCIN
  4. PREDNISONE. [Concomitant]
     Active Substance: PREDNISONE

REACTIONS (6)
  - Pain in extremity [Unknown]
  - Dysuria [Unknown]
  - Pelvic infection [Unknown]
  - Neutropenia [Unknown]
  - Back pain [Unknown]
  - Depression [Unknown]
